FAERS Safety Report 7972122-X (Version None)
Quarter: 2011Q4

REPORT INFORMATION
  Report Type: 
  Country: None (occurrence: None)
  Receive Date: 20111212
  Receipt Date: 20111201
  Transmission Date: 20120403
  Serious: Yes (Other)
  Sender: FDA-Public Use
  Company Number: JP-ALLERGAN-1116065US

PATIENT
  Age: 73 Year
  Sex: Female

DRUGS (6)
  1. DIAMOX SRC [Concomitant]
     Dosage: UNK
     Dates: start: 20110203
  2. DEXAMETHASONE [Concomitant]
     Dosage: UNK
     Route: 047
     Dates: start: 20110422, end: 20110812
  3. OFLOXIN [Concomitant]
     Dosage: UNK
     Dates: start: 20110422, end: 20110812
  4. LUMIGAN [Suspect]
     Indication: OPEN ANGLE GLAUCOMA
     Dosage: 1 GTT, QPM
     Route: 047
     Dates: start: 20101026
  5. RYSMON [Concomitant]
     Dosage: UNK
     Route: 047
     Dates: start: 20110729
  6. AVASTIN [Concomitant]
     Dosage: UNK
     Dates: start: 20101115, end: 20101115

REACTIONS (3)
  - VITREOUS HAEMORRHAGE [None]
  - RETINAL TEAR [None]
  - VISUAL ACUITY REDUCED [None]
